FAERS Safety Report 5783120-9 (Version None)
Quarter: 2008Q2

REPORT INFORMATION
  Report Type: 
  Country: None (occurrence: None)
  Receive Date: 20080619
  Receipt Date: 20080619
  Transmission Date: 20081010
  Serious: Yes (Hospitalization)
  Sender: FDA-Public Use
  Company Number: None

PATIENT
  Sex: Female
  Weight: 90.72 kg

DRUGS (11)
  1. CARBOPLATIN [Suspect]
     Dosage: 500 MG
  2. TAXOL [Suspect]
     Dosage: 350 MG
  3. ALLOPURINOL [Concomitant]
  4. ASPIRIN [Concomitant]
  5. ATENOLOL [Concomitant]
  6. COLCHICINE [Concomitant]
  7. COUMADIN [Concomitant]
  8. GLIPIZIDE [Concomitant]
  9. IRON SULFATETHIAMIN COMPOUND TAB [Concomitant]
  10. LIPITOR [Concomitant]
  11. LISINOPRIL [Concomitant]

REACTIONS (4)
  - ANAEMIA [None]
  - CHEST PAIN [None]
  - DEHYDRATION [None]
  - URINARY TRACT INFECTION [None]
